FAERS Safety Report 5700513-6 (Version None)
Quarter: 2008Q2

REPORT INFORMATION
  Report Type: 
  Country: None (occurrence: None)
  Receive Date: 20080408
  Receipt Date: 20080408
  Transmission Date: 20081010
  Serious: Yes (Life-Threatening)
  Sender: FDA-Public Use
  Company Number: None

PATIENT
  Age: 65 Year
  Sex: Male
  Weight: 61.2356 kg

DRUGS (1)
  1. AMBIEN [Suspect]
     Indication: INSOMNIA
     Dosage: ONE PILL
     Dates: start: 20071220, end: 20071220

REACTIONS (3)
  - AGGRESSION [None]
  - HALLUCINATION [None]
  - PARANOIA [None]
